FAERS Safety Report 13713398 (Version 1)
Quarter: 2017Q3

REPORT INFORMATION
  Report Type: Spontaneous
  Country: US (occurrence: US)
  Receive Date: 20170704
  Receipt Date: 20170704
  Transmission Date: 20171127
  Serious: No
  Sender: FDA-Public Use
  Company Number: US-ASTRAZENECA-2006BM08022

PATIENT
  Age: 51 Year
  Sex: Male
  Weight: 86.2 kg

DRUGS (7)
  1. BYETTA [Suspect]
     Active Substance: EXENATIDE
     Indication: TYPE 2 DIABETES MELLITUS
     Dosage: 10 ???G, BID
     Route: 058
     Dates: start: 20060515, end: 2006
  2. BYETTA [Suspect]
     Active Substance: EXENATIDE
     Indication: TYPE 2 DIABETES MELLITUS
     Dosage: 5 ???G, UNK
     Route: 058
     Dates: start: 20060507, end: 20060514
  3. NOVOLIN NPH [Concomitant]
     Active Substance: INSULIN HUMAN
     Dosage: 25 IU, QD
     Route: 058
     Dates: start: 2001, end: 20060508
  4. LANTUS [Concomitant]
     Active Substance: INSULIN GLARGINE
     Dosage: 40 IU, QD
     Route: 058
     Dates: start: 2001, end: 20060508
  5. BYETTA [Suspect]
     Active Substance: EXENATIDE
     Indication: TYPE 2 DIABETES MELLITUS
     Dosage: 5 ???G, QD
     Route: 058
     Dates: start: 20060614
  6. NOVOLIN NPH [Concomitant]
     Active Substance: INSULIN HUMAN
     Dosage: 15 IU, QD
     Route: 058
     Dates: start: 2001, end: 20060508
  7. BYETTA [Suspect]
     Active Substance: EXENATIDE
     Indication: TYPE 2 DIABETES MELLITUS
     Dosage: 10 ???G, QD
     Route: 058
     Dates: start: 20060614

REACTIONS (7)
  - Nausea [Not Recovered/Not Resolved]
  - Weight decreased [Unknown]
  - Headache [Not Recovered/Not Resolved]
  - Vomiting [Unknown]
  - Asthenia [Recovering/Resolving]
  - Abdominal discomfort [Recovering/Resolving]
  - Blood glucose decreased [Recovering/Resolving]

NARRATIVE: CASE EVENT DATE: 200604
